FAERS Safety Report 4678253-4 (Version None)
Quarter: 2005Q2

REPORT INFORMATION
  Report Type: 
  Country: None (occurrence: None)
  Receive Date: 20050601
  Receipt Date: 20050525
  Transmission Date: 20051028
  Serious: Yes (Other)
  Sender: FDA-Public Use
  Company Number: 200514839GDDC

PATIENT
  Sex: Female
  Weight: 28.5 kg

DRUGS (4)
  1. INSULIN GLARGINE [Suspect]
     Dosage: DOSE UNIT: UNITS
     Route: 058
     Dates: start: 20040414
  2. NOVORAPID [Suspect]
     Dosage: DOSE: 12-18; DOSE UNIT: UNITS
     Route: 058
     Dates: start: 20040414
  3. TRIMETHOPRIM [Concomitant]
     Indication: INFECTION
  4. INSULIN LISPRO [Concomitant]
     Indication: DIABETES MELLITUS

REACTIONS (2)
  - IDIOPATHIC THROMBOCYTOPENIC PURPURA [None]
  - NEUTROPHIL COUNT DECREASED [None]
